FAERS Safety Report 5013806-5 (Version None)
Quarter: 2006Q2

REPORT INFORMATION
  Report Type: 
  Country: None (occurrence: None)
  Receive Date: 20060530
  Receipt Date: 19950531
  Transmission Date: 20061013
  Serious: Yes (Hospitalization)
  Sender: FDA-Public Use
  Company Number: AU-ROCHE-45848

PATIENT
  Age: 66 Year
  Sex: Male
  Weight: 82 kg

DRUGS (8)
  1. ISOTRETINOIN [Suspect]
     Indication: NEOPLASM PROPHYLAXIS
     Route: 048
     Dates: start: 19941209
  2. ISOTRETINOIN [Suspect]
     Route: 048
     Dates: start: 19940512, end: 19940830
  3. ISOTRETINOIN [Suspect]
     Route: 048
     Dates: start: 19941104, end: 19941108
  4. DOXYCYCLINE [Concomitant]
     Route: 048
     Dates: start: 19940410
  5. ALLOPURINOL [Concomitant]
     Indication: GOUT
     Dates: start: 19940511
  6. THEOPHYLLINE [Concomitant]
     Indication: ASTHMA
     Dates: start: 19940511
  7. BECOTIDE [Concomitant]
     Indication: ASTHMA
     Dates: start: 19940511
  8. VENTOLIN [Concomitant]
     Indication: ASTHMA
     Dates: start: 19940511

REACTIONS (4)
  - DYSPHAGIA [None]
  - INFLAMMATION [None]
  - SKIN NEOPLASM EXCISION [None]
  - VOCAL CORD DISORDER [None]
